FAERS Safety Report 10030106 (Version 1)
Quarter: 2014Q1

REPORT INFORMATION
  Report Type: Spontaneous
  Country: US (occurrence: US)
  Receive Date: 20140323
  Receipt Date: 20140323
  Transmission Date: 20141002
  Serious: No
  Sender: FDA-Public Use
  Company Number: US-ALLERGAN-1311074US

PATIENT
  Age: 67 Year
  Sex: Female

DRUGS (3)
  1. LATISSE 0.03% [Suspect]
     Indication: GROWTH OF EYELASHES
     Dosage: 2 GTT, UNK
     Route: 061
     Dates: start: 20130226
  2. ARIMIDEX [Concomitant]
     Indication: HORMONE SUPPRESSION THERAPY
  3. CITALOPRAM [Concomitant]
     Indication: ANXIETY

REACTIONS (3)
  - Wrong technique in drug usage process [Unknown]
  - Drug dose omission [Unknown]
  - Drug ineffective [Unknown]
